FAERS Safety Report 16038012 (Version 1)
Quarter: 2019Q1

REPORT INFORMATION
  Report Type: Report from Study
  Country: US (occurrence: US)
  Receive Date: 20190305
  Receipt Date: 20190305
  Transmission Date: 20190418
  Serious: Yes (Disabling)
  Sender: FDA-Public Use
  Company Number: US-ACTELION-A-US2017-163006

PATIENT
  Age: 73 Year
  Sex: Female

DRUGS (2)
  1. SILDENAFIL. [Concomitant]
     Active Substance: SILDENAFIL
     Dosage: UNK
     Dates: start: 20180105
  2. OPSUMIT [Suspect]
     Active Substance: MACITENTAN
     Indication: PULMONARY ARTERIAL HYPERTENSION
     Dosage: 10 MG, QD
     Route: 048
     Dates: start: 20171017

REACTIONS (10)
  - Bedridden [Unknown]
  - Nasopharyngitis [Unknown]
  - Memory impairment [Not Recovered/Not Resolved]
  - Inappropriate schedule of product administration [Unknown]
  - Musculoskeletal chest pain [Recovered/Resolved]
  - Dizziness [Recovered/Resolved]
  - Fatigue [Unknown]
  - Chemotherapy [Unknown]
  - Peripheral swelling [Recovered/Resolved]
  - Malaise [Unknown]

NARRATIVE: CASE EVENT DATE: 20171017
